FAERS Safety Report 16011833 (Version 2)
Quarter: 2019Q2

REPORT INFORMATION
  Report Type: Report from Study
  Country: JP (occurrence: JP)
  Receive Date: 20190227
  Receipt Date: 20190407
  Transmission Date: 20190711
  Serious: Yes (Hospitalization, Other)
  Sender: FDA-Public Use
  Company Number: JP-ACTELION-A-CH2019-186697

PATIENT
  Age: 15 Year
  Sex: Female

DRUGS (9)
  1. OPSUMIT [Suspect]
     Active Substance: MACITENTAN
     Indication: PORTOPULMONARY HYPERTENSION
     Dosage: 10 MG, QD
     Route: 048
     Dates: start: 20181115
  2. GLAKAY [Concomitant]
     Active Substance: MENATETRENONE
  3. BERAPROST SODIUM [Suspect]
     Active Substance: BERAPROST SODIUM
     Indication: PORTOPULMONARY HYPERTENSION
     Dosage: 20 MCG, TID
     Route: 048
     Dates: start: 20181112
  4. URSODEOXYCHOLIC ACID [Concomitant]
     Active Substance: URSODIOL
  5. ZINC. [Concomitant]
     Active Substance: ZINC
  6. SAWACILLIN [Concomitant]
     Active Substance: AMOXICILLIN
  7. PIARLE [Concomitant]
  8. LIVACT [Concomitant]
     Active Substance: AMINO ACIDS
  9. JUVELA [Concomitant]
     Active Substance: .ALPHA.-TOCOPHEROL\RETINOL

REACTIONS (7)
  - Condition aggravated [Unknown]
  - Flushing [Recovering/Resolving]
  - Pulmonary arterial pressure increased [Recovering/Resolving]
  - Portopulmonary hypertension [Recovering/Resolving]
  - Concomitant disease aggravated [Not Recovered/Not Resolved]
  - Pancytopenia [Not Recovered/Not Resolved]
  - Headache [Recovering/Resolving]

NARRATIVE: CASE EVENT DATE: 20181115
